FAERS Safety Report 6482644-9 (Version None)
Quarter: 2009Q4

REPORT INFORMATION
  Report Type: 
  Country: None (occurrence: None)
  Receive Date: 20091209
  Receipt Date: 20091202
  Transmission Date: 20100525
  Serious: Yes (Hospitalization)
  Sender: FDA-Public Use
  Company Number: US-BIOGENIDEC-2009BI032819

PATIENT
  Age: 49 Year
  Sex: Female

DRUGS (1)
  1. AVONEX [Suspect]
     Indication: MULTIPLE SCLEROSIS
     Route: 030
     Dates: start: 20070326, end: 20090530

REACTIONS (4)
  - BREAST CALCIFICATIONS [None]
  - BREAST CANCER METASTATIC [None]
  - FIBROCYSTIC BREAST DISEASE [None]
  - INTRADUCTAL PAPILLOMA OF BREAST [None]
